FAERS Safety Report 9549470 (Version 1)
Quarter: 2013Q3

REPORT INFORMATION
  Report Type: Spontaneous
  Country: US (occurrence: None)
  Receive Date: 20130719
  Receipt Date: 20130719
  Transmission Date: 20140515
  Serious: Yes (Hospitalization)
  Sender: FDA-Public Use
  Company Number: 2012BAX024918

PATIENT
  Age: 35 Year
  Sex: Female
  Weight: 113.3 kg

DRUGS (7)
  1. CYCLOPHOSPHAMIDE [Suspect]
     Indication: BREAST CANCER METASTATIC
     Dates: start: 20061127, end: 20070319
  2. ELLENCE [Suspect]
     Indication: BREAST CANCER METASTATIC
     Dates: start: 20061127, end: 20070319
  3. FLUOROURACIL [Suspect]
     Indication: BREAST CANCER METASTATIC
     Dates: start: 20061127, end: 20070319
  4. BEVACIZUMAB [Suspect]
     Indication: BREAST CANCER METASTATIC
     Dosage: 1 IN 3 WK
     Route: 042
     Dates: start: 20061127, end: 20070319
  5. EFFEXOR [Concomitant]
  6. ATIVAN [Concomitant]
  7. CLARITIN [Concomitant]

REACTIONS (1)
  - Febrile neutropenia [None]
